FAERS Safety Report 16096325 (Version 6)
Quarter: 2019Q3

REPORT INFORMATION
  Report Type: Spontaneous
  Country: US (occurrence: US)
  Receive Date: 20190320
  Receipt Date: 20190726
  Transmission Date: 20191004
  Serious: Yes (Other)
  Sender: FDA-Public Use
  Company Number: US-PFIZER INC-2019119708

PATIENT
  Age: 63 Year
  Sex: Female

DRUGS (3)
  1. PREMARIN [Suspect]
     Active Substance: ESTROGENS, CONJUGATED
     Indication: OESTROGEN REPLACEMENT THERAPY
     Dosage: UNK
     Dates: start: 1989
  2. PREMARIN [Suspect]
     Active Substance: ESTROGENS, CONJUGATED
     Dosage: 0.3 MG, DAILY (TAKE ONE TABLET (0.3MG) DAILY)
     Dates: start: 20190425
  3. PREMARIN [Suspect]
     Active Substance: ESTROGENS, CONJUGATED
     Dosage: 0.3 MG, DAILY (TAKE ONE TABLET (0.3MG) DAILY)
     Dates: start: 20190530

REACTIONS (4)
  - Eye pain [Unknown]
  - Systemic lupus erythematosus [Unknown]
  - Eye swelling [Unknown]
  - Hypoacusis [Unknown]
